FAERS Safety Report 5263254-8 (Version None)
Quarter: 2007Q1

REPORT INFORMATION
  Report Type: 
  Country: None (occurrence: None)
  Receive Date: 20061219
  Receipt Date: 20060926
  Transmission Date: 20070707
  Serious: No
  Sender: FDA-Public Use
  Company Number: 2006US002194

PATIENT
  Age: 50 Year
  Sex: Female

DRUGS (3)
  1. VESICARE [Suspect]
     Indication: MICTURITION URGENCY
     Dosage: 10 MG, ORAL
     Route: 048
     Dates: start: 20060830, end: 20060906
  2. ESTRADIOL (ESTRADIOL VALERATE) [Concomitant]
  3. PROGESTERONE [Concomitant]

REACTIONS (6)
  - DYSPNOEA [None]
  - HEADACHE [None]
  - HEART RATE INCREASED [None]
  - PYREXIA [None]
  - RASH [None]
  - VISION BLURRED [None]
